FAERS Safety Report 7378490-4 (Version None)
Quarter: 2011Q1

REPORT INFORMATION
  Report Type: 
  Country: None (occurrence: None)
  Receive Date: 20110328
  Receipt Date: 20110317
  Transmission Date: 20110831
  Serious: Yes (Other)
  Sender: FDA-Public Use
  Company Number: US-ASTRAZENECA-2011SE15069

PATIENT
  Age: 52 Year
  Sex: Female

DRUGS (6)
  1. NEXIUM [Suspect]
     Indication: BARRETT'S OESOPHAGUS
     Dosage: DAILY
     Route: 048
     Dates: start: 20100101
  2. KLONOPIN [Concomitant]
     Indication: SLEEP DISORDER
  3. MELATONIN [Concomitant]
  4. THYROID MEDICATION [Concomitant]
  5. NEXIUM [Suspect]
     Indication: GASTROOESOPHAGEAL REFLUX DISEASE
     Dosage: DAILY
     Route: 048
     Dates: start: 20100101
  6. BENADRYL [Concomitant]

REACTIONS (4)
  - DIARRHOEA [None]
  - ABDOMINAL PAIN UPPER [None]
  - COELIAC DISEASE [None]
  - HAEMORRHAGE [None]
